FAERS Safety Report 9920397 (Version 1)
Quarter: 2014Q1

REPORT INFORMATION
  Report Type: Report from Study
  Country: US (occurrence: US)
  Receive Date: 20140224
  Receipt Date: 20140224
  Transmission Date: 20141002
  Serious: Yes (Hospitalization)
  Sender: FDA-Public Use
  Company Number: US-ABBVIE-14P-163-1203294-00

PATIENT
  Age: 25 Year
  Sex: Male
  Weight: 54.48 kg

DRUGS (2)
  1. HUMIRA [Suspect]
     Indication: CROHN^S DISEASE
     Route: 058
     Dates: start: 201305, end: 201309
  2. HUMIRA [Suspect]
     Route: 058
     Dates: start: 201306

REACTIONS (1)
  - Rectal haemorrhage [Recovered/Resolved]
